FAERS Safety Report 9172312 (Version 1)
Quarter: 2013Q1

REPORT INFORMATION
  Report Type: Spontaneous
  Country: US (occurrence: US)
  Receive Date: 20130319
  Receipt Date: 20130319
  Transmission Date: 20140127
  Serious: No
  Sender: FDA-Public Use
  Company Number: US-ASTRAZENECA-2013SE12374

PATIENT
  Age: 521 Month
  Sex: Female
  Weight: 113.4 kg

DRUGS (6)
  1. SYMBICORT [Suspect]
     Indication: ASTHMA
     Dosage: 160MCG BID
     Route: 055
     Dates: start: 2012
  2. LISINOPRIL [Suspect]
     Indication: PRODUCT USED FOR UNKNOWN INDICATION
     Route: 048
  3. METOPROLOL [Suspect]
     Indication: HYPERTENSION
     Dosage: DAILY
     Route: 065
  4. METFORMIN [Concomitant]
     Indication: DIABETES MELLITUS
     Dosage: UNK DAILY
     Route: 048
  5. VIT D [Concomitant]
     Indication: MEDICAL DIET
     Dosage: UNK DAILY
     Route: 048
  6. FISHOILS [Concomitant]
     Indication: MEDICAL DIET
     Dosage: UNK DAILY
     Route: 048

REACTIONS (9)
  - Dysphagia [Not Recovered/Not Resolved]
  - Viral infection [Not Recovered/Not Resolved]
  - Lymphadenopathy [Not Recovered/Not Resolved]
  - Nasal congestion [Not Recovered/Not Resolved]
  - Sensation of foreign body [Not Recovered/Not Resolved]
  - Sleep apnoea syndrome [Unknown]
  - Nasal oedema [Not Recovered/Not Resolved]
  - Palatal oedema [Not Recovered/Not Resolved]
  - Drug hypersensitivity [Not Recovered/Not Resolved]
